FAERS Safety Report 4665367-8 (Version None)
Quarter: 2005Q2

REPORT INFORMATION
  Report Type: 
  Country: None (occurrence: None)
  Receive Date: 20050517
  Receipt Date: 20050311
  Transmission Date: 20051028
  Serious: No
  Sender: FDA-Public Use
  Company Number: S05-USA-01352-01

PATIENT
  Age: 83 Year
  Sex: Male

DRUGS (15)
  1. NAMENDA [Suspect]
     Indication: DEMENTIA
     Dosage: 10 MG BID PO
     Route: 048
     Dates: start: 20050225
  2. NAMENDA [Suspect]
     Indication: DEMENTIA
     Dosage: 5 MG QD PO
     Route: 048
     Dates: start: 20050204, end: 20050210
  3. NAMENDA [Suspect]
     Indication: DEMENTIA
     Dosage: 5 MG BID PO
     Route: 048
     Dates: start: 20050211, end: 20050217
  4. NAMENDA [Suspect]
     Indication: DEMENTIA
     Dosage: 15 MG QD PO
     Route: 048
     Dates: start: 20050218, end: 20050224
  5. ARICEPT [Concomitant]
  6. FUROSEMIDE [Concomitant]
  7. ENALAPRIL MALEATE [Concomitant]
  8. POTASSIUM CHLORIDE [Concomitant]
  9. ASPIRIN [Concomitant]
  10. DIGOXIN [Concomitant]
  11. ISOSORBIDE [Concomitant]
  12. LUPRON [Concomitant]
  13. TAMSULOSIN [Concomitant]
  14. PAROXETINE HCL [Concomitant]
  15. FINASTERIDE [Concomitant]

REACTIONS (5)
  - CHEILITIS [None]
  - CONFUSIONAL STATE [None]
  - HALLUCINATION, VISUAL [None]
  - INSOMNIA [None]
  - NIGHT SWEATS [None]
